FAERS Safety Report 6991761-6 (Version None)
Quarter: 2010Q3

REPORT INFORMATION
  Report Type: 
  Country: None (occurrence: None)
  Receive Date: 20100916
  Receipt Date: 20100916
  Transmission Date: 20110219
  Serious: Yes (Other)
  Sender: FDA-Public Use
  Company Number: None

PATIENT
  Sex: Male
  Weight: 83.9154 kg

DRUGS (2)
  1. ADULT NYQUIL VICKS [Suspect]
     Indication: UPPER RESPIRATORY TRACT INFECTION
     Dosage: 1 OZ Q4TH UP TO 4 DOSES PO
     Route: 048
     Dates: start: 20100801
  2. ADULT DAYQUIL VICKS [Suspect]
     Indication: UPPER RESPIRATORY TRACT INFECTION
     Dosage: 1 OZ Q4TH UP TO 4 DOSES PO
     Route: 048
     Dates: start: 20100801, end: 20100804

REACTIONS (1)
  - ARRHYTHMIA [None]
